FAERS Safety Report 14766469 (Version 3)
Quarter: 2018Q3

REPORT INFORMATION
  Report Type: Report from Study
  Country: JP (occurrence: JP)
  Receive Date: 20180416
  Receipt Date: 20180719
  Transmission Date: 20181010
  Serious: Yes (Hospitalization, Other)
  Sender: FDA-Public Use
  Company Number: JP-ALXN-A201803939AA

PATIENT
  Age: 68 Year
  Sex: Male
  Weight: 75 kg

DRUGS (6)
  1. SOLIRIS [Suspect]
     Active Substance: ECULIZUMAB
     Dosage: 900 MG, UNK
     Route: 042
     Dates: start: 20120807
  2. PREDONINE [Concomitant]
     Active Substance: PREDNISOLONE
     Indication: PAROXYSMAL NOCTURNAL HAEMOGLOBINURIA
     Dosage: 5 MG, QD
     Route: 048
     Dates: start: 20170423
  3. GENINAX [Suspect]
     Active Substance: GARENOXACIN MESYLATE
     Indication: CELLULITIS
     Dosage: 400 MG, QD
     Route: 048
     Dates: start: 20180226, end: 20180228
  4. SOLIRIS [Suspect]
     Active Substance: ECULIZUMAB
     Indication: PAROXYSMAL NOCTURNAL HAEMOGLOBINURIA
     Dosage: 600 MG, QW
     Route: 042
     Dates: start: 20120626, end: 20120724
  5. WARFARIN [Concomitant]
     Active Substance: WARFARIN
     Indication: BUDD-CHIARI SYNDROME
     Dosage: UNK
     Route: 065
  6. ELIQUIS [Concomitant]
     Active Substance: APIXABAN
     Indication: BUDD-CHIARI SYNDROME
     Dosage: UNK
     Route: 065

REACTIONS (7)
  - Intra-abdominal haemorrhage [Recovered/Resolved]
  - Budd-Chiari syndrome [Not Recovered/Not Resolved]
  - Inappropriate schedule of drug administration [Unknown]
  - Drug ineffective [Unknown]
  - Atrioventricular block complete [Recovered/Resolved]
  - Condition aggravated [Not Recovered/Not Resolved]
  - Cellulitis [Recovered/Resolved]

NARRATIVE: CASE EVENT DATE: 20170403
